FAERS Safety Report 8124416-5 (Version None)
Quarter: 2012Q1

REPORT INFORMATION
  Report Type: 
  Country: None (occurrence: None)
  Receive Date: 20120209
  Receipt Date: 20120126
  Transmission Date: 20120608
  Serious: Yes (Hospitalization)
  Sender: FDA-Public Use
  Company Number: US-UCBSA-042542

PATIENT
  Age: 23 Year
  Sex: Male
  Weight: 47.73 kg

DRUGS (19)
  1. CERTOLIZUMAB PEGOL [Suspect]
     Route: 058
     Dates: start: 20100326, end: 20101213
  2. OMEPRAZOLE [Concomitant]
  3. ASCORBIC ACID [Concomitant]
  4. FLUCONAZOLE [Concomitant]
     Dates: start: 20110904, end: 20110918
  5. PERCOCET [Concomitant]
     Indication: PAIN
     Dosage: 5/325MG 1-2 TABLETS; Q4H
     Route: 048
  6. LIDOCAINE [Concomitant]
     Indication: OROPHARYNGEAL PAIN
  7. CLONAZEPAM [Concomitant]
     Route: 048
  8. MERCAPTOPURINE [Concomitant]
     Dosage: DAILY
  9. LEVAQUIN [Concomitant]
  10. VITAMIN D [Concomitant]
  11. BENZOCAINE/TETRACAINE [Concomitant]
     Dosage: 1 SPRAY EVERY 4 HOURS
     Route: 061
  12. MALOX [Concomitant]
     Indication: OROPHARYNGEAL PAIN
  13. BENADRYL SWISH AND SWALLOW [Concomitant]
     Indication: OROPHARYNGEAL PAIN
  14. TRAZODONE HCL [Concomitant]
     Dosage: AT NIGHT
  15. MERCAPTOPURINE [Concomitant]
     Dosage: DAILY
     Route: 048
     Dates: start: 20100401
  16. BUTABEN [Concomitant]
     Dosage: 1 SPRAY EVERY 4 HOURS
     Route: 061
  17. CERTOLIZUMAB PEGOL [Suspect]
     Indication: CROHN'S DISEASE
     Route: 058
     Dates: start: 20110114
  18. ONDANSETRON [Concomitant]
     Indication: NAUSEA
  19. MULTI-VITAMIN [Concomitant]
     Dosage: DAILY

REACTIONS (1)
  - OROPHARYNGEAL CANDIDIASIS [None]
